FAERS Safety Report 9457488 (Version 1)
Quarter: 2013Q3

REPORT INFORMATION
  Report Type: Spontaneous
  Country: US (occurrence: None)
  Receive Date: 20130812
  Receipt Date: 20130812
  Transmission Date: 20140515
  Serious: No
  Sender: FDA-Public Use
  Company Number: None

PATIENT
  Age: 72 Year
  Sex: Female
  Weight: 62.6 kg

DRUGS (1)
  1. SPIRIVA [Suspect]
     Indication: ASTHMA
     Route: 055
     Dates: start: 20130701, end: 20130806

REACTIONS (8)
  - Dizziness [None]
  - Dyspnoea [None]
  - Headache [None]
  - Chest discomfort [None]
  - Gastric disorder [None]
  - Eye pain [None]
  - Feeling abnormal [None]
  - Unevaluable event [None]
